FAERS Safety Report 12160302 (Version 1)
Quarter: 2016Q1

REPORT INFORMATION
  Report Type: Spontaneous
  Country: ZA (occurrence: ZA)
  Receive Date: 20160308
  Receipt Date: 20160308
  Transmission Date: 20160526
  Serious: Yes (Other)
  Sender: FDA-Public Use
  Company Number: ZA-CIPLA-2016ZA01994

PATIENT

DRUGS (3)
  1. SHORT ACTING INSULIN [Concomitant]
     Active Substance: INSULIN NOS
     Indication: DIABETES MELLITUS
     Dosage: UNK
  2. VENLOR [Suspect]
     Active Substance: VENLAFAXINE HYDROCHLORIDE
     Indication: DEPRESSION
     Dosage: 75 (UNITS UNSPECIFIED), MORNING
  3. EPITEC 50 [Suspect]
     Active Substance: LAMOTRIGINE
     Indication: DEPRESSION
     Dosage: 50 MG, UNK, EVENING

REACTIONS (3)
  - Insomnia [Unknown]
  - Fear of falling [Unknown]
  - Dizziness [Unknown]
